FAERS Safety Report 4776715-2 (Version None)
Quarter: 2005Q3

REPORT INFORMATION
  Report Type: 
  Country: None (occurrence: None)
  Receive Date: 20050923
  Receipt Date: 20050918
  Transmission Date: 20060218
  Serious: Yes (Death, Hospitalization, Other)
  Sender: FDA-Public Use
  Company Number: SE-JNJFOC-20050800467

PATIENT
  Age: 73 Year
  Sex: Female

DRUGS (17)
  1. INFLIXIMAB [Suspect]
     Route: 042
  2. INFLIXIMAB [Suspect]
     Indication: RHEUMATOID ARTHRITIS
     Route: 042
  3. IMUREL [Suspect]
     Indication: RHEUMATOID ARTHRITIS
  4. PREDNISOLONE [Suspect]
     Indication: RHEUMATOID ARTHRITIS
  5. NORMORIX [Concomitant]
  6. NORMORIX [Concomitant]
  7. PREDNISONE [Concomitant]
  8. PLENDIL [Concomitant]
  9. IMOVANE [Concomitant]
  10. TRAMADOL [Concomitant]
  11. FOLACIN [Concomitant]
  12. FOLACIN [Concomitant]
  13. MARZINE [Concomitant]
  14. ACETAMINOPHEN [Concomitant]
  15. CONFORTID [Concomitant]
  16. LOSEC [Concomitant]
  17. NIFEREX [Concomitant]

REACTIONS (9)
  - ACID FAST BACILLI INFECTION [None]
  - ASCITES [None]
  - BLOOD ALKALINE PHOSPHATASE INCREASED [None]
  - C-REACTIVE PROTEIN INCREASED [None]
  - DISSEMINATED TUBERCULOSIS [None]
  - HYPERCALCAEMIA [None]
  - PLEURAL EFFUSION [None]
  - RED BLOOD CELL SEDIMENTATION RATE INCREASED [None]
  - SPLENIC ABSCESS [None]
